FAERS Safety Report 8031068-1 (Version None)
Quarter: 2012Q1

REPORT INFORMATION
  Report Type: 
  Country: None (occurrence: None)
  Receive Date: 20120109
  Receipt Date: 20120106
  Transmission Date: 20120608
  Serious: Yes (Other)
  Sender: FDA-Public Use
  Company Number: US-PFIZER INC-2008074340

PATIENT
  Sex: Female
  Weight: 63 kg

DRUGS (8)
  1. CHANTIX [Suspect]
     Dosage: UNK
     Route: 048
  2. CHANTIX [Suspect]
     Dosage: 0.5 MG, 2X/DAY
     Route: 048
     Dates: start: 20070101, end: 20070101
  3. CHANTIX [Suspect]
     Dosage: 1 MG, 1X/DAY
     Route: 048
     Dates: start: 20080827, end: 20080828
  4. CHANTIX [Suspect]
     Dosage: UNK
     Route: 048
     Dates: start: 20080829
  5. CHANTIX [Suspect]
     Dosage: 1 MG, 2X/DAY
     Route: 048
     Dates: start: 20070101
  6. CHANTIX [Suspect]
     Dosage: 1 MG, 2X/DAY
     Route: 048
     Dates: start: 20080801, end: 20080801
  7. CHANTIX [Suspect]
     Dosage: UNK
     Route: 048
     Dates: start: 20110701
  8. CHANTIX [Suspect]
     Indication: SMOKING CESSATION THERAPY
     Dosage: 0.5 MG, 1X/DAY
     Route: 048
     Dates: start: 20070101, end: 20070101

REACTIONS (4)
  - DISTURBANCE IN ATTENTION [None]
  - ABDOMINAL PAIN UPPER [None]
  - NAUSEA [None]
  - IMPAIRED WORK ABILITY [None]
